FAERS Safety Report 25610854 (Version 1)
Quarter: 2025Q3

REPORT INFORMATION
  Report Type: Spontaneous
  Country: US (occurrence: None)
  Receive Date: 20250725
  Receipt Date: 20250725
  Transmission Date: 20251020
  Serious: Yes (Other)
  Sender: FDA-CTU
  Company Number: None

PATIENT
  Age: 61 Year
  Sex: Female
  Weight: 70.65 kg

DRUGS (8)
  1. ATORVASTATIN [Suspect]
     Active Substance: ATORVASTATIN
     Indication: Cerebrovascular accident
     Route: 048
  2. Losartan- meloxicam [Concomitant]
  3. INSULIN GLARGINE [Concomitant]
     Active Substance: INSULIN GLARGINE
  4. OZEMPIC [Concomitant]
     Active Substance: SEMAGLUTIDE
  5. TYLENOL [Concomitant]
     Active Substance: ACETAMINOPHEN
  6. ozemprazole [Concomitant]
  7. b12 [Concomitant]
  8. VITAMINS [Concomitant]
     Active Substance: VITAMINS

REACTIONS (3)
  - Blister [None]
  - Eczema [None]
  - Scar [None]

NARRATIVE: CASE EVENT DATE: 20250530
